FAERS Safety Report 23643621 (Version 1)
Quarter: 2024Q1

REPORT INFORMATION
  Report Type: Spontaneous
  Country: EG (occurrence: EG)
  Receive Date: 20240318
  Receipt Date: 20240318
  Transmission Date: 20240409
  Serious: Yes (Hospitalization, Other)
  Sender: FDA-Public Use
  Company Number: EG-HIKMA PHARMACEUTICALS-EG-H14001-24-02189

PATIENT

DRUGS (3)
  1. CARBOPLATIN [Suspect]
     Active Substance: CARBOPLATIN
     Indication: Breast cancer
     Dosage: 456.7 MILLIGRAM, 3W
     Route: 041
     Dates: start: 20231206
  2. DOCETAXEL [Suspect]
     Active Substance: DOCETAXEL\DOCETAXEL ANHYDROUS
     Indication: Breast cancer
     Dosage: 120 MILLIGRAM, 3W
     Route: 041
     Dates: start: 20231206
  3. PERTUZUMAB\TRASTUZUMAB [Suspect]
     Active Substance: PERTUZUMAB\TRASTUZUMAB
     Indication: Breast cancer
     Dosage: 600 MILLIGRAM, 3W
     Route: 058
     Dates: start: 20231206

REACTIONS (4)
  - Anaemia [Unknown]
  - Vomiting [Unknown]
  - Palmar-plantar erythrodysaesthesia syndrome [Not Recovered/Not Resolved]
  - Constipation [Recovered/Resolved]

NARRATIVE: CASE EVENT DATE: 20231207
